FAERS Safety Report 4692637-X (Version None)
Quarter: 2005Q2

REPORT INFORMATION
  Report Type: 
  Country: None (occurrence: None)
  Receive Date: 20050617
  Receipt Date: 20050609
  Transmission Date: 20051028
  Serious: Yes (Death, Life-Threatening, Hospitalization)
  Sender: FDA-Public Use
  Company Number: DE-MERCK-0506DEU00086

PATIENT
  Age: 59 Year
  Sex: Male

DRUGS (3)
  1. VIOXX [Suspect]
     Indication: MUSCULOSKELETAL PAIN
     Route: 048
     Dates: start: 20020206, end: 20020605
  2. VIOXX [Suspect]
     Route: 048
  3. PREDNISOLONE [Concomitant]
     Route: 065
     Dates: start: 20010301

REACTIONS (9)
  - CARDIAC FAILURE [None]
  - CEREBRAL INFARCTION [None]
  - DEPRESSION [None]
  - INGUINAL HERNIA [None]
  - PLEURAL EFFUSION [None]
  - PNEUMONIA [None]
  - SEPSIS [None]
  - TRANSIENT ISCHAEMIC ATTACK [None]
  - VASCULITIS [None]
